FAERS Safety Report 23364713 (Version 1)
Quarter: 2024Q1

REPORT INFORMATION
  Report Type: Spontaneous
  Country: CZ (occurrence: CZ)
  Receive Date: 20240104
  Receipt Date: 20240104
  Transmission Date: 20240410
  Serious: Yes (Hospitalization)
  Sender: FDA-Public Use
  Company Number: None

PATIENT
  Age: 14 Year
  Sex: Female

DRUGS (8)
  1. ESCIN [Suspect]
     Active Substance: ESCIN
     Indication: Product used for unknown indication
     Dosage: 20 MG (TOTAL DOSE 20 TABLETS, 20 MG X 20)
     Route: 065
  2. IBUPROFEN [Suspect]
     Active Substance: IBUPROFEN
     Indication: Product used for unknown indication
     Dosage: 400 MG (TOTAL DOSE 20 TABLETS, 400 MG X 20)
     Route: 065
  3. IBUPROFEN [Suspect]
     Active Substance: IBUPROFEN
     Indication: Product used for unknown indication
     Dosage: UNK
     Route: 065
     Dates: start: 20211116
  4. PENICILLIN V BENZATHINE [Suspect]
     Active Substance: PENICILLIN V BENZATHINE
     Indication: Product used for unknown indication
     Dosage: 1500 MG (TOTAL DOSE 20 TABLETS, 1500 MG X 20)
     Route: 065
  5. ACETAMINOPHEN [Suspect]
     Active Substance: ACETAMINOPHEN
     Indication: Product used for unknown indication
     Dosage: 18 DF
     Route: 065
     Dates: start: 20211116
  6. ACETAMINOPHEN [Suspect]
     Active Substance: ACETAMINOPHEN
     Indication: Product used for unknown indication
     Dosage: 6000 MG (TOTAL DOSE 6000 MG)
     Route: 065
  7. ACETAMINOPHEN [Suspect]
     Active Substance: ACETAMINOPHEN
     Dosage: UNK
     Route: 065
  8. CETIRIZINE HYDROCHLORIDE [Suspect]
     Active Substance: CETIRIZINE HYDROCHLORIDE
     Indication: Product used for unknown indication
     Dosage: 10 MG (TOTAL DOSE 20 TABLETS ,10 MG X 20)
     Route: 065

REACTIONS (3)
  - Suicide attempt [Unknown]
  - Intentional overdose [Unknown]
  - Abdominal pain [Unknown]

NARRATIVE: CASE EVENT DATE: 20211116
